FAERS Safety Report 4645917-8 (Version None)
Quarter: 2005Q2

REPORT INFORMATION
  Report Type: 
  Country: None (occurrence: None)
  Receive Date: 20050422
  Receipt Date: 20050422
  Transmission Date: 20051028
  Serious: Yes (Death)
  Sender: FDA-Public Use
  Company Number: None

PATIENT
  Age: 86 Year
  Sex: Female

DRUGS (2)
  1. MORPHINE [Suspect]
     Dosage: 4MG X 3
     Dates: start: 20041201
  2. PHENERGAN [Suspect]

REACTIONS (10)
  - BLOOD PRESSURE DIASTOLIC DECREASED [None]
  - BLOOD PRESSURE SYSTOLIC INCREASED [None]
  - CARDIO-RESPIRATORY ARREST [None]
  - CEREBELLAR INFARCTION [None]
  - EMBOLISM [None]
  - HYPOXIA [None]
  - LOSS OF CONSCIOUSNESS [None]
  - POST PROCEDURAL COMPLICATION [None]
  - SEDATION [None]
  - TROPONIN INCREASED [None]
